FAERS Safety Report 8841626 (Version 1)
Quarter: 2012Q4

REPORT INFORMATION
  Report Type: 
  Country: CN (occurrence: CN)
  Receive Date: 20121015
  Receipt Date: 20121015
  Transmission Date: 20130627
  Serious: Yes (Life-Threatening, Hospitalization)
  Sender: FDA-Public Use
  Company Number: CN-ASTRAZENECA-2012SE77752

PATIENT
  Age: 72 Year
  Sex: Male

DRUGS (2)
  1. QUETIAPINE FUMARATE [Suspect]
     Indication: ANXIETY
     Dosage: Taken more than 50 pills
     Route: 048
  2. QUETIAPINE FUMARATE [Suspect]
     Indication: PARANOIA
     Dosage: Taken more than 50 pills
     Route: 048

REACTIONS (4)
  - Overdose [Unknown]
  - Toxicity to various agents [Unknown]
  - Coma [Recovered/Resolved]
  - Suicide attempt [Unknown]
